FAERS Safety Report 17820700 (Version 1)
Quarter: 2020Q2

REPORT INFORMATION
  Report Type: Spontaneous
  Country: US (occurrence: US)
  Receive Date: 20200525
  Receipt Date: 20200525
  Transmission Date: 20200714
  Serious: Yes (Other)
  Sender: FDA-Public Use
  Company Number: NVSC2019US047217

PATIENT

DRUGS (9)
  1. FENOFIBRATE. [Suspect]
     Active Substance: FENOFIBRATE
     Indication: SARCOMA
     Dosage: 100 MG/M2, QD
     Route: 065
     Dates: start: 201804
  2. TEMOZOLOMIDE. [Suspect]
     Active Substance: TEMOZOLOMIDE
     Indication: SARCOMA
     Dosage: 30 MG/M2, QD
     Route: 065
     Dates: start: 201804
  3. PAZOPANIB [Suspect]
     Active Substance: PAZOPANIB
     Indication: SARCOMA
     Dosage: UNK
     Route: 065
     Dates: start: 201808
  4. CELECOXIB. [Suspect]
     Active Substance: CELECOXIB
     Indication: SARCOMA
     Dosage: 400 MG/M2, QD
     Route: 065
     Dates: start: 201804
  5. IFOSFAMIDE. [Suspect]
     Active Substance: IFOSFAMIDE
     Indication: SARCOMA
     Dosage: UNK
     Route: 065
     Dates: start: 201608, end: 201701
  6. ETOPOSIDE. [Suspect]
     Active Substance: ETOPOSIDE
     Indication: SARCOMA
     Dosage: 25 MG/M2, QD
     Route: 065
     Dates: start: 201804
  7. BEVACIZUMAB. [Suspect]
     Active Substance: BEVACIZUMAB
     Indication: PRODUCT USED FOR UNKNOWN INDICATION
     Route: 065
  8. ERGOCALCIFEROL. [Suspect]
     Active Substance: ERGOCALCIFEROL
     Indication: SARCOMA
     Dosage: 1500 U/M2, QD
     Route: 065
     Dates: start: 201804
  9. DOXORUBICIN [Suspect]
     Active Substance: DOXORUBICIN
     Indication: SARCOMA
     Dosage: UNK
     Route: 065
     Dates: start: 201608, end: 201701

REACTIONS (6)
  - Malignant neoplasm progression [Unknown]
  - Metastases to bone [Unknown]
  - Product use in unapproved indication [Unknown]
  - Metastases to lung [Unknown]
  - Metastases to spine [Unknown]
  - Metastases to pelvis [Unknown]

NARRATIVE: CASE EVENT DATE: 201809
